FAERS Safety Report 12656934 (Version 1)
Quarter: 2016Q3

REPORT INFORMATION
  Report Type: Spontaneous
  Country: US (occurrence: US)
  Receive Date: 20160816
  Receipt Date: 20160816
  Transmission Date: 20161109
  Serious: No
  Sender: FDA-Public Use
  Company Number: US-PERRIGO-16US015791

PATIENT
  Age: 71 Year
  Sex: Male
  Weight: 61.22 kg

DRUGS (6)
  1. LORATADINE. [Suspect]
     Active Substance: LORATADINE
     Indication: OROPHARYNGEAL PAIN
     Dosage: 10 MG, QD
     Route: 048
     Dates: start: 20160422, end: 20160426
  2. CARBIDOPA-LEVODOPA-B [Concomitant]
     Active Substance: CARBIDOPA\LEVODOPA
     Indication: PARKINSON^S DISEASE
     Dosage: UNK
     Route: 065
     Dates: start: 2014
  3. NEUPRO [Concomitant]
     Active Substance: ROTIGOTINE
     Indication: PARKINSON^S DISEASE
     Dosage: UNK
     Route: 062
     Dates: start: 2014
  4. LORATADINE. [Suspect]
     Active Substance: LORATADINE
     Indication: SEASONAL ALLERGY
  5. AMANTADINE [Concomitant]
     Active Substance: AMANTADINE
     Indication: TREMOR
     Dosage: UNK
     Route: 065
     Dates: start: 2014
  6. LORATADINE. [Suspect]
     Active Substance: LORATADINE
     Indication: SINUS CONGESTION

REACTIONS (3)
  - Dysphagia [Recovered/Resolved]
  - Off label use [Recovered/Resolved]
  - Choking [Recovered/Resolved]

NARRATIVE: CASE EVENT DATE: 20160422
